FAERS Safety Report 8608445-0 (Version None)
Quarter: 2012Q3

REPORT INFORMATION
  Report Type: 
  Country: None (occurrence: None)
  Receive Date: 20120808
  Receipt Date: 20120724
  Transmission Date: 20120928
  Serious: Yes (Life-Threatening)
  Sender: FDA-Public Use
  Company Number: BR-20120045

PATIENT
  Age: 47 Year
  Sex: Female

DRUGS (1)
  1. HEXABRIX [Suspect]
     Indication: ARTERIOGRAM CORONARY
     Dosage: UNK,, (1 IN 1 TOTA
     Dates: start: 20120704, end: 20120704

REACTIONS (5)
  - CARDIO-RESPIRATORY ARREST [None]
  - VOMITING [None]
  - NAUSEA [None]
  - CHEST PAIN [None]
  - SHOCK [None]
